FAERS Safety Report 21459764 (Version 1)
Quarter: 2022Q4

REPORT INFORMATION
  Report Type: Spontaneous
  Country: US (occurrence: None)
  Receive Date: 20221014
  Receipt Date: 20221014
  Transmission Date: 20230113
  Serious: Yes (Other)
  Sender: FDA-Public Use
  Company Number: 2022A342231

PATIENT
  Age: 22981 Day
  Sex: Female
  Weight: 88 kg

DRUGS (49)
  1. OMEPRAZOLE [Suspect]
     Active Substance: OMEPRAZOLE
     Indication: Dyspepsia
     Dosage: GENERIC
     Route: 065
     Dates: start: 200912, end: 201001
  2. OMEPRAZOLE [Suspect]
     Active Substance: OMEPRAZOLE
     Indication: Dyspepsia
     Dosage: GENERIC
     Route: 065
     Dates: start: 201203, end: 201603
  3. PREVACID [Suspect]
     Active Substance: LANSOPRAZOLE
     Indication: Dyspepsia
     Route: 065
     Dates: start: 200509, end: 200903
  4. PREVACID [Suspect]
     Active Substance: LANSOPRAZOLE
     Indication: Dyspepsia
     Dosage: GENERIC
     Route: 065
     Dates: start: 201002, end: 201106
  5. PREVACID [Suspect]
     Active Substance: LANSOPRAZOLE
     Indication: Dyspepsia
     Dosage: GENERIC
     Route: 065
     Dates: start: 201108, end: 201201
  6. PANTOPRAZOLE [Suspect]
     Active Substance: PANTOPRAZOLE
     Indication: Dyspepsia
     Dosage: GENERIC
     Route: 065
     Dates: start: 200906, end: 200912
  7. METOPROLOL [Concomitant]
     Active Substance: METOPROLOL
     Indication: Hypertension
     Dates: start: 2003, end: 2016
  8. COZAAR [Concomitant]
     Active Substance: LOSARTAN POTASSIUM
     Dates: start: 2003
  9. DETROL [Concomitant]
     Active Substance: TOLTERODINE TARTRATE
     Dates: start: 2003
  10. LORAZEPAM [Concomitant]
     Active Substance: LORAZEPAM
     Dates: start: 2003, end: 2014
  11. PROCARDIA [Concomitant]
     Active Substance: NIFEDIPINE
     Dates: start: 2003
  12. FLUOCINIDE [Concomitant]
     Dates: start: 2003
  13. QUININE SULFATE [Concomitant]
     Active Substance: QUININE SULFATE
     Indication: Muscle spasms
     Dates: start: 2003
  14. LEXAPRO [Concomitant]
     Active Substance: ESCITALOPRAM OXALATE
     Indication: Depression
     Dates: start: 2003
  15. PREMP3696 [Concomitant]
     Dates: start: 2003
  16. ALPRAZOLAM [Concomitant]
     Active Substance: ALPRAZOLAM
     Dates: start: 2008
  17. MEDROXYPROGESTERONE [Concomitant]
     Active Substance: MEDROXYPROGESTERONE
     Dates: start: 2008
  18. FLUOXETINE [Concomitant]
     Active Substance: FLUOXETINE HYDROCHLORIDE
     Dates: start: 2008
  19. METFORMIN [Concomitant]
     Active Substance: METFORMIN HYDROCHLORIDE
     Dates: start: 2010, end: 2012
  20. NIFEDIPINE [Concomitant]
     Active Substance: NIFEDIPINE
     Dates: start: 2003
  21. LYRICA [Concomitant]
     Active Substance: PREGABALIN
     Dates: start: 2016
  22. VALSARTAN [Concomitant]
     Active Substance: VALSARTAN
     Indication: Hypertension
     Dates: start: 2015
  23. PAROXETINE [Concomitant]
     Active Substance: PAROXETINE
     Dates: start: 2012, end: 2016
  24. GEMFIBROZIL [Concomitant]
     Active Substance: GEMFIBROZIL
     Dates: start: 2012, end: 2016
  25. CYMBALTA [Concomitant]
     Active Substance: DULOXETINE HYDROCHLORIDE
     Dates: start: 2008, end: 2013
  26. RISPERDAL [Concomitant]
     Active Substance: RISPERIDONE
     Dates: start: 2007, end: 2008
  27. PREMARIN [Concomitant]
     Active Substance: ESTROGENS, CONJUGATED
     Dates: start: 2008, end: 2009
  28. GABAPENTIN [Concomitant]
     Active Substance: GABAPENTIN
     Dates: start: 2010, end: 2013
  29. LANTUS [Concomitant]
     Active Substance: INSULIN GLARGINE
     Dates: start: 2010, end: 2011
  30. OXYCODONE [Concomitant]
     Active Substance: OXYCODONE
     Dates: start: 2011, end: 2012
  31. MICARDIS [Concomitant]
     Active Substance: TELMISARTAN
     Dates: start: 2011, end: 2012
  32. JANUMET [Concomitant]
     Active Substance: METFORMIN HYDROCHLORIDE\SITAGLIPTIN PHOSPHATE
     Dates: start: 2012
  33. LEVEMIR [Concomitant]
     Active Substance: INSULIN DETEMIR
     Dates: start: 2012, end: 2013
  34. IBUPROFEN [Concomitant]
     Active Substance: IBUPROFEN
     Dates: start: 2003, end: 2013
  35. VITAMIN D [Concomitant]
     Active Substance: VITAMIN D NOS
     Dates: start: 2008, end: 2010
  36. CIMETIDINE [Concomitant]
     Active Substance: CIMETIDINE
     Dates: start: 2008, end: 2010
  37. CYCLOBENZAPRINE [Concomitant]
     Active Substance: CYCLOBENZAPRINE
     Dates: start: 2003
  38. MALATHION [Concomitant]
     Active Substance: MALATHION
     Dates: start: 2003
  39. ESTRADIOL [Concomitant]
     Active Substance: ESTRADIOL
     Dates: start: 2003
  40. RENVELA [Concomitant]
     Active Substance: SEVELAMER CARBONATE
     Dates: start: 2008
  41. PROAIR HFA [Concomitant]
     Active Substance: ALBUTEROL SULFATE
     Dates: start: 2008
  42. CEFADROXIL [Concomitant]
     Active Substance: CEFADROXIL
     Dates: start: 2012, end: 2016
  43. DULOXETINE [Concomitant]
     Active Substance: DULOXETINE
     Dates: start: 2012, end: 2016
  44. NOVOLOG [Concomitant]
     Active Substance: INSULIN ASPART
     Dates: start: 2012, end: 2016
  45. FOLIC ACID [Concomitant]
     Active Substance: FOLIC ACID
     Dates: start: 2012, end: 2016
  46. NYSTATIN [Concomitant]
     Active Substance: NYSTATIN
     Dates: start: 2012, end: 2016
  47. ADVAIR DISKUS [Concomitant]
     Active Substance: FLUTICASONE PROPIONATE\SALMETEROL XINAFOATE
     Dates: start: 2003
  48. XANAX [Concomitant]
     Active Substance: ALPRAZOLAM
     Dates: start: 2003
  49. VESICARE [Concomitant]
     Active Substance: SOLIFENACIN SUCCINATE
     Dates: start: 2003

REACTIONS (8)
  - Chronic kidney disease [Not Recovered/Not Resolved]
  - Renal failure [Unknown]
  - Acute kidney injury [Unknown]
  - End stage renal disease [Unknown]
  - Renal tubular necrosis [Unknown]
  - Hyperkalaemia [Unknown]
  - Metabolic acidosis [Unknown]
  - Nephrogenic anaemia [Unknown]

NARRATIVE: CASE EVENT DATE: 20140531
